FAERS Safety Report 23766624 (Version 1)
Quarter: 2024Q2

REPORT INFORMATION
  Report Type: Spontaneous
  Country: CA (occurrence: CA)
  Receive Date: 20240422
  Receipt Date: 20240422
  Transmission Date: 20240715
  Serious: Yes (Other)
  Sender: FDA-Public Use
  Company Number: CA-002147023-NVSC2024CA080920

PATIENT
  Age: 53 Year
  Sex: Male

DRUGS (13)
  1. DICLOFENAC [Suspect]
     Active Substance: DICLOFENAC
     Indication: Product used for unknown indication
     Dosage: 100 MG, QD
     Route: 048
  2. DICLOFENAC [Suspect]
     Active Substance: DICLOFENAC
     Dosage: 100 MG, QD (FOR THE DURATION OF 366)
     Route: 048
  3. DICLOFENAC [Suspect]
     Active Substance: DICLOFENAC
     Dosage: 75 MG
     Route: 048
  4. DICLOFENAC [Suspect]
     Active Substance: DICLOFENAC
     Dosage: 75 MG
     Route: 048
  5. HUMIRA [Suspect]
     Active Substance: ADALIMUMAB
     Indication: Product used for unknown indication
     Dosage: 40 MG
     Route: 058
  6. HUMIRA [Suspect]
     Active Substance: ADALIMUMAB
     Dosage: 40 MG
     Route: 058
  7. VIOXX [Suspect]
     Active Substance: ROFECOXIB
     Indication: Product used for unknown indication
     Dosage: UNK
     Route: 065
  8. VIOXX [Suspect]
     Active Substance: ROFECOXIB
     Dosage: UNK
     Route: 065
  9. METHOTREXATE [Concomitant]
     Active Substance: METHOTREXATE
     Indication: Product used for unknown indication
     Dosage: UNK
     Route: 065
  10. METHOTREXATE [Concomitant]
     Active Substance: METHOTREXATE
     Dosage: UNK
     Route: 065
  11. SULFASALAZINE [Concomitant]
     Active Substance: SULFASALAZINE
     Dosage: 1500 MG
     Route: 048
  12. SULFASALAZINE [Concomitant]
     Active Substance: SULFASALAZINE
     Indication: Product used for unknown indication
     Dosage: 1500 MG
     Route: 065
  13. SULFASALAZINE [Concomitant]
     Active Substance: SULFASALAZINE
     Dosage: 1500 MG, BID
     Route: 065

REACTIONS (15)
  - Arthralgia [Unknown]
  - Back pain [Unknown]
  - Bone erosion [Unknown]
  - Bone marrow oedema [Unknown]
  - Discomfort [Unknown]
  - Fatigue [Unknown]
  - Gastric ulcer [Unknown]
  - Joint swelling [Unknown]
  - Lymphocyte count increased [Unknown]
  - Lymphocytosis [Unknown]
  - Musculoskeletal stiffness [Unknown]
  - Neck pain [Unknown]
  - Tenderness [Unknown]
  - Drug intolerance [Unknown]
  - Drug ineffective [Unknown]
